FAERS Safety Report 22001025 (Version 3)
Quarter: 2023Q2

REPORT INFORMATION
  Report Type: Spontaneous
  Country: US (occurrence: US)
  Receive Date: 20230216
  Receipt Date: 20230417
  Transmission Date: 20230721
  Serious: No
  Sender: FDA-Public Use
  Company Number: US-BAYER-2023P009309

PATIENT
  Age: 50 Year
  Sex: Female

DRUGS (1)
  1. MIRENA [Suspect]
     Active Substance: LEVONORGESTREL
     Indication: Heavy menstrual bleeding
     Dosage: 20?G/DAY
     Route: 015
     Dates: start: 20210811, end: 202304

REACTIONS (4)
  - Device expulsion [Recovered/Resolved]
  - Vaginal haemorrhage [None]
  - Pelvic pain [None]
  - Medical device discomfort [None]

NARRATIVE: CASE EVENT DATE: 20220301
